FAERS Safety Report 5235578-1 (Version None)
Quarter: 2007Q1

REPORT INFORMATION
  Report Type: 
  Country: None (occurrence: None)
  Receive Date: 20070212
  Receipt Date: 20070201
  Transmission Date: 20070707
  Serious: Yes (Life-Threatening, Hospitalization)
  Sender: FDA-Public Use
  Company Number: GBWYE704815AUG06

PATIENT
  Sex: Female
  Weight: 111 kg

DRUGS (6)
  1. ENBREL [Suspect]
     Indication: RHEUMATOID ARTHRITIS
     Route: 058
     Dates: start: 20050401, end: 20060621
  2. CO-DYDRAMOL [Concomitant]
     Dosage: TAKEN AS REQUIRED
     Route: 048
  3. CO-PROXAMOL [Concomitant]
     Dosage: UNKNOWN
  4. DILTIAZEM [Concomitant]
     Dosage: UNKNOWN
  5. LEFLUNOMIDE [Concomitant]
     Indication: RHEUMATOID ARTHRITIS
     Route: 048
  6. FRUSEMIDE [Concomitant]
     Indication: DIURETIC THERAPY
     Route: 048

REACTIONS (3)
  - CELLULITIS [None]
  - CONDITION AGGRAVATED [None]
  - SEPSIS [None]
